FAERS Safety Report 7781650-1 (Version None)
Quarter: 2011Q3

REPORT INFORMATION
  Report Type: 
  Country: None (occurrence: None)
  Receive Date: 20110927
  Receipt Date: 20110922
  Transmission Date: 20111222
  Serious: Yes (Hospitalization, Other)
  Sender: FDA-Public Use
  Company Number: BR-ABBOTT-10P-020-0687862-00

PATIENT
  Sex: Female
  Weight: 55 kg

DRUGS (9)
  1. PREDNISONE [Concomitant]
     Indication: RHEUMATOID ARTHRITIS
     Route: 048
  2. OMEPRAZOLE [Concomitant]
     Indication: PROPHYLAXIS
     Route: 048
     Dates: start: 20050101
  3. OMEPRAZOLE [Concomitant]
     Indication: GASTRIC DISORDER
  4. HUMIRA [Suspect]
     Dates: start: 20110922
  5. HYDROCHLOROTHIAZIDE [Suspect]
     Indication: HYPERTENSION
     Route: 048
  6. HUMIRA [Suspect]
     Indication: RHEUMATOID ARTHRITIS
     Route: 058
     Dates: start: 20090101, end: 20100905
  7. OSCAL D [Concomitant]
     Indication: BONE DISORDER
     Route: 048
     Dates: start: 20110805
  8. HYDROCHLOROTHIAZIDE [Suspect]
     Dosage: DOSE DIMINISHED
  9. LEFLUNOMIDE [Concomitant]
     Indication: RHEUMATOID ARTHRITIS
     Route: 048

REACTIONS (16)
  - BONE PAIN [None]
  - PNEUMOTHORAX [None]
  - SPINAL OSTEOARTHRITIS [None]
  - FOOT DEFORMITY [None]
  - BUNION [None]
  - PATIENT-DEVICE INCOMPATIBILITY [None]
  - PAIN IN EXTREMITY [None]
  - JOINT SWELLING [None]
  - SPINAL COMPRESSION FRACTURE [None]
  - BACK PAIN [None]
  - ARTHRALGIA [None]
  - POLLAKIURIA [None]
  - TREMOR [None]
  - OEDEMA PERIPHERAL [None]
  - BLOOD POTASSIUM DECREASED [None]
  - FOOT FRACTURE [None]
